FAERS Safety Report 20473098 (Version 2)
Quarter: 2022Q1

REPORT INFORMATION
  Report Type: Spontaneous
  Country: US (occurrence: US)
  Receive Date: 20220215
  Receipt Date: 20220324
  Transmission Date: 20220423
  Serious: Yes (Death, Life-Threatening, Hospitalization, Other)
  Sender: FDA-Public Use
  Company Number: US-CIPLA LTD.-2022US00720

PATIENT

DRUGS (3)
  1. AMLODIPINE [Suspect]
     Active Substance: AMLODIPINE BESYLATE
     Indication: Suicide attempt
     Dosage: UNK
     Route: 065
  2. AMLODIPINE [Suspect]
     Active Substance: AMLODIPINE BESYLATE
     Indication: Hypertension
     Dosage: 40 DOSAGE FORM, 1 TOTAL, INTENTIONAL OVERDOSE WITH 40 TABLETS OF HER 10 MG AMLODIPINE PRESCRIPTION
     Route: 048
     Dates: start: 202103
  3. CITALOPRAM [Concomitant]
     Active Substance: CITALOPRAM HYDROBROMIDE
     Indication: Product used for unknown indication
     Dosage: UNK
     Route: 065

REACTIONS (16)
  - Multiple organ dysfunction syndrome [Fatal]
  - Vasoplegia syndrome [Fatal]
  - Hyperkalaemia [Fatal]
  - Agitation [Fatal]
  - Mitral valve incompetence [Fatal]
  - Visceral congestion [Fatal]
  - Hypotension [Fatal]
  - Toxicity to various agents [Fatal]
  - Leukocytosis [Fatal]
  - Mental status changes [Fatal]
  - Transaminases increased [Fatal]
  - Intentional overdose [Fatal]
  - Acute kidney injury [Fatal]
  - Bradycardia [Fatal]
  - Atrioventricular dissociation [Fatal]
  - Metabolic acidosis [Fatal]

NARRATIVE: CASE EVENT DATE: 20210101
